FAERS Safety Report 16267543 (Version 2)
Quarter: 2019Q2

REPORT INFORMATION
  Report Type: Report from Study
  Country: US (occurrence: US)
  Receive Date: 20190503
  Receipt Date: 20190503
  Transmission Date: 20190711
  Serious: No
  Sender: FDA-Public Use
  Company Number: PHEH2019US018894

PATIENT
  Sex: Male

DRUGS (4)
  1. TRAVATAN Z [Suspect]
     Active Substance: TRAVOPROST
     Indication: GLAUCOMA
  2. LATANOPROST. [Suspect]
     Active Substance: LATANOPROST
     Indication: GLAUCOMA
     Dosage: UNK
     Route: 031
     Dates: start: 20140307, end: 20141104
  3. LATANOPROST. [Suspect]
     Active Substance: LATANOPROST
     Indication: OPTIC NEUROPATHY
  4. TRAVATAN Z [Suspect]
     Active Substance: TRAVOPROST
     Indication: OPTIC NEUROPATHY
     Dosage: UNK
     Route: 047
     Dates: start: 2013

REACTIONS (2)
  - Drug ineffective [Unknown]
  - Contraindicated product administered [Unknown]
